FAERS Safety Report 16002292 (Version 2)
Quarter: 2019Q2

REPORT INFORMATION
  Report Type: Spontaneous
  Country: US (occurrence: US)
  Receive Date: 20190225
  Receipt Date: 20190624
  Transmission Date: 20190711
  Serious: Yes (Hospitalization, Other)
  Sender: FDA-Public Use
  Company Number: US-CELGENEUS-USA-20190206743

PATIENT
  Age: 72 Year
  Sex: Female

DRUGS (3)
  1. REVLIMID [Suspect]
     Active Substance: LENALIDOMIDE
     Indication: PLASMA CELL MYELOMA
     Dosage: 5 MILLIGRAM
     Route: 048
     Dates: start: 201507
  2. REVLIMID [Suspect]
     Active Substance: LENALIDOMIDE
     Dosage: 2.5 MILLIGRAM
     Route: 048
     Dates: start: 201508
  3. REVLIMID [Suspect]
     Active Substance: LENALIDOMIDE
     Dosage: 2.5 MILLIGRAM
     Route: 048
     Dates: start: 201906

REACTIONS (4)
  - Pneumonia [Recovering/Resolving]
  - Sepsis [Recovering/Resolving]
  - White blood cell count decreased [Recovering/Resolving]
  - Red blood cell count decreased [Recovering/Resolving]

NARRATIVE: CASE EVENT DATE: 201902
